FAERS Safety Report 25016309 (Version 2)
Quarter: 2025Q1

REPORT INFORMATION
  Report Type: Spontaneous
  Country: CA (occurrence: CA)
  Receive Date: 20250227
  Receipt Date: 20250326
  Transmission Date: 20250408
  Serious: Yes (Other)
  Sender: NOVO NORDISK
  Company Number: CA-NOVOPROD-1346281

PATIENT
  Age: 70 Year
  Sex: Female
  Weight: 79.4 kg

DRUGS (4)
  1. OZEMPIC [Suspect]
     Active Substance: SEMAGLUTIDE
     Indication: Weight control
  2. PRO-QUETIAPINE [Concomitant]
     Dosage: 25 MG, QD, FOR 10 YEARS
     Route: 048
  3. ATORVASTATIN [Concomitant]
     Active Substance: ATORVASTATIN
     Dosage: 10 MG, QD, FOR 5 YEARS
     Route: 048
  4. EZETIMIBE [Concomitant]
     Active Substance: EZETIMIBE
     Dosage: 10 MG, QD, FOR 5 YEARS
     Route: 048

REACTIONS (4)
  - Cataract operation [Unknown]
  - Persistent depressive disorder [Unknown]
  - Weight increased [Unknown]
  - Off label use [Unknown]
